FAERS Safety Report 6587741-5 (Version None)
Quarter: 2010Q1

REPORT INFORMATION
  Report Type: 
  Country: None (occurrence: None)
  Receive Date: 20100218
  Receipt Date: 20100209
  Transmission Date: 20100710
  Serious: Yes (Death)
  Sender: FDA-Public Use
  Company Number: US-ROXANE LABORATORIES, INC.-2010-DE-01067GD

PATIENT
  Age: 47 Year
  Sex: Male

DRUGS (4)
  1. MORPHINE [Suspect]
  2. SERTRALINE HCL [Suspect]
  3. DIAZEPAM [Suspect]
  4. OXYCODONE HCL [Suspect]

REACTIONS (1)
  - DEATH [None]
